FAERS Safety Report 6098862-8 (Version None)
Quarter: 2009Q1

REPORT INFORMATION
  Report Type: 
  Country: None (occurrence: None)
  Receive Date: 20090302
  Receipt Date: 20090226
  Transmission Date: 20090719
  Serious: Yes (Death, Hospitalization)
  Sender: FDA-Public Use
  Company Number: B0526541A

PATIENT
  Age: 32 Year
  Sex: Female

DRUGS (2)
  1. DILATREND [Suspect]
     Indication: CARDIOMYOPATHY
     Dosage: 12.5MG PER DAY
     Route: 048
     Dates: start: 20080401, end: 20080415
  2. CONDOM [Concomitant]

REACTIONS (3)
  - DRUG EXPOSURE DURING PREGNANCY [None]
  - HAEMORRHAGE [None]
  - UTERINE ATONY [None]
